FAERS Safety Report 17409858 (Version 3)
Quarter: 2020Q1

REPORT INFORMATION
  Report Type: Spontaneous
  Country: FR (occurrence: FR)
  Receive Date: 20200212
  Receipt Date: 20200311
  Transmission Date: 20200409
  Serious: Yes (Hospitalization, Other)
  Sender: FDA-Public Use
  Company Number: NVSC2020FR030761

PATIENT
  Age: 60 Year
  Sex: Male

DRUGS (12)
  1. FUROSEMIDE. [Interacting]
     Active Substance: FUROSEMIDE
     Indication: MYOCARDIAL INFARCTION
     Dosage: 40 MG, QD (1 DOSING UNIT IN THE MORNING)
     Route: 048
     Dates: start: 2019
  2. CARTEOLOL HCL [Interacting]
     Active Substance: CARTEOLOL HYDROCHLORIDE
     Indication: GLAUCOMA
     Dosage: 2 GTT, QD, (RESTARTED)
     Route: 047
     Dates: start: 2019, end: 20191120
  3. BISOPROLOL [Interacting]
     Active Substance: BISOPROLOL
     Indication: CARDIAC FAILURE
     Dosage: 1.25 MG, QD
     Route: 048
     Dates: start: 2019, end: 2019
  4. COLCHICINE. [Interacting]
     Active Substance: COLCHICINE
     Indication: MYOCARDIAL INFARCTION
     Dosage: 1 MG, QD, (1 TABLET IN THE EVENING)
     Route: 048
     Dates: start: 2019
  5. KARDEGIC [Interacting]
     Active Substance: ASPIRIN DL-LYSINE
     Indication: MYOCARDIAL INFARCTION
     Dosage: 1 DF, QD, (1 DOSING UNIT AT LUNCH)
     Route: 048
     Dates: start: 2019
  6. BRILIQUE [Interacting]
     Active Substance: TICAGRELOR
     Indication: MYOCARDIAL INFARCTION
     Dosage: 90 MG, QD, (1 DOSING UNIT)
     Route: 048
     Dates: start: 2019
  7. ATORVASTATIN [Interacting]
     Active Substance: ATORVASTATIN
     Indication: MYOCARDIAL INFARCTION
     Dosage: 80 MG, QD
     Route: 048
     Dates: start: 2019
  8. CARTEOLOL HCL [Interacting]
     Active Substance: CARTEOLOL HYDROCHLORIDE
     Dosage: 2 GTT, QD, (STARTED APPROXIMATELY 5 YEARS AGO (REPORTED AS SEVERAL YEARS); 1 DROP PER DAY IN EACH EY
     Route: 047
     Dates: end: 2019
  9. TAREG [Suspect]
     Active Substance: VALSARTAN
     Indication: MYOCARDIAL INFARCTION
     Dosage: 40 MG, QD (1 TABLET IN THE EVENING)
     Route: 048
     Dates: start: 2019, end: 2019
  10. EPLERENONE. [Interacting]
     Active Substance: EPLERENONE
     Indication: MYOCARDIAL INFARCTION
     Dosage: 25 MG, QD, (1 DOSING UNIT AT LUNCH)
     Route: 048
     Dates: start: 2019
  11. BISOPROLOL [Interacting]
     Active Substance: BISOPROLOL
     Indication: MYOCARDIAL INFARCTION
  12. CARTEOLOL HCL [Interacting]
     Active Substance: CARTEOLOL HYDROCHLORIDE
     Dosage: 2 GTT, QD, (RESTARTED)
     Route: 047
     Dates: start: 2019, end: 2019

REACTIONS (9)
  - Cardiac failure [Unknown]
  - Visual impairment [Not Recovered/Not Resolved]
  - Contraindicated product administered [Unknown]
  - Hypotension [Unknown]
  - Vertigo [Not Recovered/Not Resolved]
  - Labelled drug-drug interaction medication error [Unknown]
  - Weight decreased [Recovered/Resolved]
  - Myocardial infarction [Unknown]
  - Cataract [Not Recovered/Not Resolved]

NARRATIVE: CASE EVENT DATE: 2019
